FAERS Safety Report 9729176 (Version 2)
Quarter: 2013Q4

REPORT INFORMATION
  Report Type: Report from Study
  Country: US (occurrence: US)
  Receive Date: 20131204
  Receipt Date: 20131204
  Transmission Date: 20140711
  Serious: Yes (Other)
  Sender: FDA-Public Use
  Company Number: US-ABBVIE-13P-163-1120131-00

PATIENT
  Sex: Female

DRUGS (5)
  1. HUMIRA [Suspect]
     Indication: RHEUMATOID ARTHRITIS
     Dosage: ONE PEN (40 MG)
     Route: 058
     Dates: start: 201004, end: 201209
  2. HUMIRA [Suspect]
     Dates: start: 201304
  3. METAFORMIN [Concomitant]
     Indication: PRODUCT USED FOR UNKNOWN INDICATION
  4. PLAVIX [Concomitant]
     Indication: PRODUCT USED FOR UNKNOWN INDICATION
  5. WARFARIN [Concomitant]
     Indication: PRODUCT USED FOR UNKNOWN INDICATION

REACTIONS (8)
  - Neuropathy peripheral [Unknown]
  - Cerebrovascular accident [Recovering/Resolving]
  - Cerebrovascular accident [Recovering/Resolving]
  - Cerebrovascular accident [Recovering/Resolving]
  - Speech disorder [Recovering/Resolving]
  - Dysphagia [Recovering/Resolving]
  - Nasopharyngitis [Recovering/Resolving]
  - Multiple sclerosis [Unknown]
